FAERS Safety Report 9031478 (Version 1)
Quarter: 2013Q1

REPORT INFORMATION
  Report Type: Report from Study
  Country: DE (occurrence: DE)
  Receive Date: 20130124
  Receipt Date: 20130124
  Transmission Date: 20140127
  Serious: Yes (Hospitalization)
  Sender: FDA-Public Use
  Company Number: DE-ROCHE-1181872

PATIENT
  Age: 51 Year
  Sex: Male
  Weight: 58 kg

DRUGS (7)
  1. RITUXIMAB [Suspect]
     Indication: RHEUMATOID ARTHRITIS
     Route: 042
     Dates: start: 20111205
  2. MTX [Concomitant]
     Indication: RHEUMATOID ARTHRITIS
     Route: 058
     Dates: start: 201110, end: 20121105
  3. PREDNISOLON [Concomitant]
     Indication: RHEUMATOID ARTHRITIS
     Route: 048
     Dates: start: 201102, end: 20121109
  4. FOLSAN [Concomitant]
     Indication: RHEUMATOID ARTHRITIS
     Route: 065
     Dates: start: 200403, end: 20121109
  5. VOLTAREN [Concomitant]
     Indication: RHEUMATOID ARTHRITIS
     Route: 048
     Dates: start: 200204, end: 20121109
  6. URSOFALK [Concomitant]
     Route: 048
     Dates: start: 201008, end: 20121109
  7. ASS [Concomitant]
     Route: 048
     Dates: start: 200210

REACTIONS (1)
  - Joint effusion [Recovering/Resolving]
